FAERS Safety Report 14990866 (Version 2)
Quarter: 2018Q3

REPORT INFORMATION
  Report Type: Spontaneous
  Country: US (occurrence: US)
  Receive Date: 20180608
  Receipt Date: 20180716
  Transmission Date: 20181010
  Serious: Yes (Other)
  Sender: FDA-Public Use
  Company Number: US-GILEAD-2018-0342403

PATIENT
  Age: 61 Year
  Sex: Male

DRUGS (4)
  1. RAPAMUNE [Concomitant]
     Active Substance: SIROLIMUS
  2. DAKLINZA [Suspect]
     Active Substance: DACLATASVIR
     Indication: CHRONIC HEPATITIS C
     Dosage: UNK
     Route: 065
     Dates: start: 2017, end: 2017
  3. SOVALDI [Suspect]
     Active Substance: SOFOSBUVIR
     Indication: CHRONIC HEPATITIS C
     Dosage: UNK
     Route: 065
     Dates: start: 2017, end: 2017
  4. RIBAVIRIN. [Suspect]
     Active Substance: RIBAVIRIN
     Indication: CHRONIC HEPATITIS C
     Dosage: UNK
     Route: 065
     Dates: start: 2017, end: 2017

REACTIONS (2)
  - Drug resistance [Unknown]
  - Treatment failure [Unknown]

NARRATIVE: CASE EVENT DATE: 2017
